FAERS Safety Report 10210246 (Version 1)
Quarter: 2014Q2

REPORT INFORMATION
  Report Type: Spontaneous
  Country: US (occurrence: None)
  Receive Date: 20140529
  Receipt Date: 20140529
  Transmission Date: 20141212
  Serious: No
  Sender: FDA-Public Use
  Company Number: None

PATIENT
  Age: 78 Year
  Sex: Female

DRUGS (8)
  1. CAPECITABINE [Suspect]
     Indication: COLON CANCER
     Route: 048
     Dates: start: 20140508
  2. XELODA [Suspect]
     Indication: GASTROINTESTINAL NEOPLASM
     Route: 048
     Dates: start: 20140412, end: 20140507
  3. SYNTHROID [Concomitant]
  4. REPAGLINIDE [Concomitant]
  5. LISINOPRIL [Concomitant]
  6. ATENOLOL [Concomitant]
  7. ALLOPURINOL [Concomitant]
  8. ASPIRIN [Concomitant]

REACTIONS (2)
  - Paraesthesia [None]
  - Skin exfoliation [None]
